FAERS Safety Report 23850468 (Version 1)
Quarter: 2024Q2

REPORT INFORMATION
  Report Type: Spontaneous
  Country: IT (occurrence: IT)
  Receive Date: 20240513
  Receipt Date: 20240513
  Transmission Date: 20240716
  Serious: Yes (Other)
  Sender: FDA-Public Use
  Company Number: IT-SEATTLE GENETICS-2024SGN05296

PATIENT

DRUGS (2)
  1. ADCETRIS [Suspect]
     Active Substance: BRENTUXIMAB VEDOTIN
     Indication: Hodgkin^s disease
     Dosage: 1.8 MG/KG, Q3WEEKS
     Route: 042
     Dates: start: 201211, end: 201407
  2. ADCETRIS [Suspect]
     Active Substance: BRENTUXIMAB VEDOTIN
     Dosage: 1.2 MG/KG
     Route: 042

REACTIONS (9)
  - Pancytopenia [Unknown]
  - Pancreatitis [Unknown]
  - Respiratory failure [Unknown]
  - Acute myeloid leukaemia [Unknown]
  - Acute respiratory distress syndrome [Unknown]
  - Thrombocytopenia [Unknown]
  - Neutropenia [Unknown]
  - Haematotoxicity [Unknown]
  - Peripheral sensory neuropathy [Unknown]
